FAERS Safety Report 13895783 (Version 2)
Quarter: 2017Q4

REPORT INFORMATION
  Report Type: Spontaneous
  Country: ES (occurrence: ES)
  Receive Date: 20170823
  Receipt Date: 20171019
  Transmission Date: 20180320
  Serious: Yes (Disabling, Other)
  Sender: FDA-Public Use
  Company Number: ES-AMGEN-ESPSP2017127772

PATIENT
  Age: 60 Year
  Sex: Female

DRUGS (10)
  1. PRITOR [Concomitant]
     Active Substance: TELMISARTAN
     Dosage: 40 MG, UNK
  2. PROLIA [Suspect]
     Active Substance: DENOSUMAB
     Dosage: 60 MG, Q6MO
     Route: 065
     Dates: start: 20170509
  3. CITIDINE [Concomitant]
     Dosage: 1 MG, 1 TABLET BEFORE MEALS
  4. DAFLON [Concomitant]
     Active Substance: DIOSMIN\HESPERIDIN
     Dosage: 500 MG, QD
  5. PREVENCOR [Concomitant]
     Active Substance: ATORVASTATIN CALCIUM
     Dosage: 10 MG, QD
  6. COPINAL [Concomitant]
     Dosage: 300 MG, 1 PACKET AFTER MEALS
  7. PROLIA [Suspect]
     Active Substance: DENOSUMAB
     Indication: OSTEOPOROSIS POSTMENOPAUSAL
     Dosage: 60 MG, Q6MO
     Route: 065
     Dates: start: 20111111, end: 201612
  8. AXIAGO [Concomitant]
     Active Substance: ESOMEPRAZOLE MAGNESIUM
     Dosage: 40 MG, QD
  9. EUTIROX [Concomitant]
     Active Substance: LEVOTHYROXINE SODIUM
     Dosage: 35 MG, UNK
  10. ORFIDAL [Concomitant]
     Active Substance: LORAZEPAM
     Dosage: 1 MG, QD

REACTIONS (10)
  - Lumbar vertebral fracture [Unknown]
  - Back pain [Not Recovered/Not Resolved]
  - Bone pain [Recovering/Resolving]
  - Dyspepsia [Recovering/Resolving]
  - Malaise [Unknown]
  - Arthralgia [Unknown]
  - Nausea [Recovering/Resolving]
  - Fatigue [Unknown]
  - Gastrointestinal disorder [Recovered/Resolved]
  - Musculoskeletal chest pain [Unknown]

NARRATIVE: CASE EVENT DATE: 2015
